FAERS Safety Report 6262115-5 (Version None)
Quarter: 2009Q3

REPORT INFORMATION
  Report Type: 
  Country: None (occurrence: None)
  Receive Date: 20090709
  Receipt Date: 20090608
  Transmission Date: 20100115
  Serious: Yes (Hospitalization, Other)
  Sender: FDA-Public Use
  Company Number: FR-JNJFOC-20090606839

PATIENT
  Sex: Female

DRUGS (4)
  1. IXPRIM [Suspect]
     Indication: NECK PAIN
     Route: 048
  2. MONO-TILDIEM [Concomitant]
  3. INDAPAMIDE [Concomitant]
  4. FENOFIBRATE [Concomitant]

REACTIONS (7)
  - DIZZINESS [None]
  - HYPERHIDROSIS [None]
  - LOSS OF CONSCIOUSNESS [None]
  - MALAISE [None]
  - NAUSEA [None]
  - VISION BLURRED [None]
  - VOMITING [None]
